FAERS Safety Report 5037370-X (Version None)
Quarter: 2006Q2

REPORT INFORMATION
  Report Type: 
  Country: None (occurrence: None)
  Receive Date: 20060622
  Receipt Date: 20060609
  Transmission Date: 20061013
  Serious: Yes (Death)
  Sender: FDA-Public Use
  Company Number: 2006JP001219

PATIENT
  Age: 40 Year
  Sex: Female
  Weight: 54 kg

DRUGS (6)
  1. PROGRAF [Suspect]
     Indication: RENAL TRANSPLANT
     Dosage: 1.5 MG, BID, ORAL
     Route: 048
     Dates: start: 20020119, end: 20020121
  2. MEDROL [Suspect]
     Indication: RENAL TRANSPLANT
     Dosage: 8 MG, UID/QD, ORAL
     Route: 048
     Dates: start: 20010925, end: 20020121
  3. NEORAL [Suspect]
     Indication: RENAL TRANSPLANT
     Dosage: 60 MG, BID, ORAL
     Route: 048
     Dates: start: 20010925, end: 20020121
  4. CELLCEPT [Suspect]
     Indication: RENAL TRANSPLANT
     Dosage: 250 MG, BID, ORAL
     Route: 048
     Dates: start: 20010925, end: 20011028
  5. GUSPERIMUS (GUSPERIMUS) INJECTION [Concomitant]
  6. GASTER TABLET [Concomitant]

REACTIONS (10)
  - HEPATIC FAILURE [None]
  - HEPATITIS C VIRUS [None]
  - HEPATITIS CHOLESTATIC [None]
  - IMMUNOSUPPRESSANT DRUG LEVEL INCREASED [None]
  - PLATELET COUNT DECREASED [None]
  - PNEUMONIA [None]
  - PROTHROMBIN TIME PROLONGED [None]
  - PSEUDOMONAS INFECTION [None]
  - RENAL FAILURE ACUTE [None]
  - SEPTIC SHOCK [None]
